FAERS Safety Report 5853532-3 (Version None)
Quarter: 2008Q3

REPORT INFORMATION
  Report Type: 
  Country: None (occurrence: None)
  Receive Date: 20080822
  Receipt Date: 20080812
  Transmission Date: 20090109
  Serious: Yes (Other)
  Sender: FDA-Public Use
  Company Number: US-JNJFOC-20080803004

PATIENT
  Sex: Male
  Weight: 97.98 kg

DRUGS (6)
  1. PREZISTA [Suspect]
     Indication: HIV INFECTION
     Route: 048
  2. INTELENCE [Suspect]
     Indication: HIV INFECTION
     Route: 048
  3. ISENTRESS [Suspect]
     Indication: HIV INFECTION
     Route: 065
  4. NORVIR [Suspect]
     Indication: HIV INFECTION
     Route: 048
  5. REYATAZ [Suspect]
     Indication: HIV INFECTION
     Route: 065
  6. TRUVADA [Suspect]
     Indication: HIV INFECTION
     Route: 065

REACTIONS (8)
  - BLOOD CORTICOTROPHIN DECREASED [None]
  - FAT REDISTRIBUTION [None]
  - HYPERHIDROSIS [None]
  - IMMUNE RECONSTITUTION SYNDROME [None]
  - INCREASED APPETITE [None]
  - PAIN IN EXTREMITY [None]
  - SKIN NODULE [None]
  - WEIGHT INCREASED [None]
